FAERS Safety Report 16983126 (Version 5)
Quarter: 2019Q4

REPORT INFORMATION
  Report Type: Report from Study
  Country: IN (occurrence: IN)
  Receive Date: 20191101
  Receipt Date: 20191216
  Transmission Date: 20200122
  Serious: Yes (Life-Threatening, Hospitalization)
  Sender: FDA-Public Use
  Company Number: IN-KARYOPHARM-2019KPT000719

PATIENT
  Age: 60 Year
  Sex: Female

DRUGS (50)
  1. SELINEXOR [Suspect]
     Active Substance: SELINEXOR
     Dosage: 100 MG, WEEKLY
     Route: 048
     Dates: start: 20180808, end: 20181002
  2. BORTEZOMIB. [Suspect]
     Active Substance: BORTEZOMIB
     Dosage: 1.0 MG/M2, WEEKLY X 4 WEEKS, 1 WEEK OFF/CYCLE
     Route: 058
     Dates: start: 20181009, end: 20191015
  3. BORTEZOMIB. [Suspect]
     Active Substance: BORTEZOMIB
     Dosage: 1.3 MG/M2, WEEKLY X 4 WEEKS, 1 WEEK OFF/CYCLE
     Route: 058
     Dates: start: 20181016, end: 20190722
  4. AMARYL [Concomitant]
     Active Substance: GLIMEPIRIDE
     Indication: DIABETES MELLITUS
     Dosage: 2.5 MG, BID
     Route: 048
     Dates: start: 20181105
  5. BIZFER XT [Concomitant]
     Indication: PRODUCT USED FOR UNKNOWN INDICATION
     Dosage: 76 MG, BID
     Route: 048
     Dates: start: 20190315
  6. PIPERACILLIN AND TAZOBACTAM [Concomitant]
     Active Substance: PIPERACILLIN SODIUM\TAZOBACTAM SODIUM
     Indication: PYREXIA
     Dosage: 4.5 MG ONCE
     Route: 042
     Dates: start: 20190928, end: 20190928
  7. PIPERACILLIN AND TAZOBACTAM [Concomitant]
     Active Substance: PIPERACILLIN SODIUM\TAZOBACTAM SODIUM
     Dosage: 2.5 G, TID
     Route: 042
     Dates: start: 20190928, end: 20191003
  8. SELINEXOR [Suspect]
     Active Substance: SELINEXOR
     Dosage: 80 MG, WEEKLY
     Route: 048
     Dates: start: 20180604, end: 20180624
  9. SELINEXOR [Suspect]
     Active Substance: SELINEXOR
     Dosage: 100 MG, WEEKLY
     Route: 048
     Dates: start: 20181016, end: 20181120
  10. BORTEZOMIB. [Suspect]
     Active Substance: BORTEZOMIB
     Dosage: 1.0 MG/M2, WEEKLY X 4 WEEKS, 1 WEEK OFF/CYCLE
     Route: 058
     Dates: start: 20180723, end: 20180807
  11. DEXAMETHASONE. [Suspect]
     Active Substance: DEXAMETHASONE
     Indication: PLASMA CELL MYELOMA
     Dosage: 20 MG, 2X/WEEK
     Route: 048
     Dates: start: 20180507, end: 20191018
  12. PANTOPRAZOLE [Concomitant]
     Active Substance: PANTOPRAZOLE
     Indication: PROPHYLAXIS
     Dosage: 40 MG, QD
     Route: 048
     Dates: start: 20180609
  13. RANITIDINE. [Concomitant]
     Active Substance: RANITIDINE
     Indication: GASTRITIS PROPHYLAXIS
     Dosage: 50 MG, TID
     Route: 042
     Dates: start: 20190928, end: 20191003
  14. CLOTRIMAZOLE. [Concomitant]
     Active Substance: CLOTRIMAZOLE
     Indication: INFECTION PROPHYLAXIS
     Dosage: 10 MG, TID
     Route: 048
     Dates: start: 20190928, end: 20190930
  15. BIFIDOBACTERIUM ANIMALIS [Concomitant]
     Active Substance: BIFIDOBACTERIUM ANIMALIS LACTIS
     Indication: DIARRHOEA
     Dosage: 1 DF, PRN
     Route: 048
     Dates: start: 20190929, end: 20191003
  16. SELINEXOR [Suspect]
     Active Substance: SELINEXOR
     Indication: PLASMA CELL MYELOMA
     Dosage: 100 MG, WEEKLY
     Route: 048
     Dates: start: 20180507, end: 20180603
  17. EMESET [Concomitant]
     Active Substance: ONDANSETRON HYDROCHLORIDE
     Indication: PROPHYLAXIS
     Dosage: 8 MG, BID
     Route: 048
     Dates: start: 20190413
  18. LACTATED RINGERS SOLUTION [Concomitant]
     Active Substance: CALCIUM CHLORIDE\POTASSIUM CHLORIDE\SODIUM CHLORIDE\SODIUM LACTATE
     Indication: DEHYDRATION
     Dosage: 1500 ML, QD
     Route: 042
     Dates: start: 20190928, end: 20190929
  19. SELINEXOR [Suspect]
     Active Substance: SELINEXOR
     Dosage: 100 MG, WEEKLY
     Route: 048
     Dates: start: 20180625, end: 20180722
  20. BORTEZOMIB. [Suspect]
     Active Substance: BORTEZOMIB
     Dosage: 1.0 MG/M2, WEEKLY X 4 WEEKS, 1 WEEK OFF/CYCLE
     Route: 058
     Dates: start: 20180829, end: 20180924
  21. BORTEZOMIB. [Suspect]
     Active Substance: BORTEZOMIB
     Dosage: 1.0 MG/M2, WEEKLY X 4 WEEKS, 1 WEEK OFF/CYCLE
     Route: 058
     Dates: start: 20190723, end: 20190812
  22. BORTEZOMIB. [Suspect]
     Active Substance: BORTEZOMIB
     Dosage: 1.3 MG/M2, WEEKLY X 4 WEEKS, 1 WEEK OFF/CYCLE
     Route: 058
     Dates: start: 20190813, end: 20191010
  23. PIOGLITAZONE. [Concomitant]
     Active Substance: PIOGLITAZONE
     Indication: PRODUCT USED FOR UNKNOWN INDICATION
     Dosage: 7.5 MG, QD
     Route: 048
     Dates: start: 20181105
  24. EMESET [Concomitant]
     Active Substance: ONDANSETRON HYDROCHLORIDE
     Dosage: 8 MG, TID
     Route: 042
     Dates: start: 20190928, end: 20190930
  25. NORMAL SALINE [Concomitant]
     Active Substance: SODIUM CHLORIDE
     Indication: DEHYDRATION
     Dosage: 1000 ML, QD
     Route: 042
     Dates: start: 20190928, end: 20190929
  26. VIBACT [Concomitant]
     Indication: DIARRHOEA
     Dosage: 1 TABLET, BID
     Route: 048
     Dates: start: 20190928, end: 20191008
  27. LUPITUSS [Concomitant]
     Indication: COUGH
     Dosage: 10 ML, QD
     Route: 048
     Dates: start: 20191017
  28. AMINOPHYLLINE. [Concomitant]
     Active Substance: AMINOPHYLLINE
     Indication: PROPHYLAXIS
     Dosage: 25 MG, QD
     Route: 042
     Dates: start: 20190928, end: 20190929
  29. PARACETAMOL [Concomitant]
     Active Substance: ACETAMINOPHEN
     Indication: PROPHYLAXIS
     Dosage: 650 MG STAT
     Route: 048
     Dates: start: 20190928, end: 20190930
  30. PARACETAMOL [Concomitant]
     Active Substance: ACETAMINOPHEN
     Dosage: 100 ML STAT
     Dates: start: 20190928, end: 20190928
  31. SELINEXOR [Suspect]
     Active Substance: SELINEXOR
     Dosage: 80 MG, WEEKLY
     Route: 048
     Dates: start: 20181003, end: 20181015
  32. AMARYL [Concomitant]
     Active Substance: GLIMEPIRIDE
     Dosage: 1 MG, BID
     Route: 048
     Dates: start: 20180608
  33. METRONIDAZOLE. [Concomitant]
     Active Substance: METRONIDAZOLE
     Indication: DIARRHOEA
     Dosage: 500 MG, TID
     Route: 042
     Dates: start: 20190928, end: 20191003
  34. FUROSEMIDE. [Concomitant]
     Active Substance: FUROSEMIDE
     Indication: ACUTE KIDNEY INJURY
     Dosage: 10 MG STAT
     Route: 042
     Dates: start: 20190928, end: 20190928
  35. DOXYCYCLINE HYCLATE. [Concomitant]
     Active Substance: DOXYCYCLINE HYCLATE
     Indication: INFECTION PROPHYLAXIS
     Dosage: 100 MG, BID
     Route: 048
     Dates: start: 20190929, end: 20191003
  36. HUMAN INSULINK [Concomitant]
     Active Substance: INSULIN HUMAN
     Indication: DIABETES MELLITUS
     Dosage: 3 IU, QD
     Route: 058
     Dates: start: 20190928, end: 20191001
  37. CIPROFLOXACIN. [Concomitant]
     Active Substance: CIPROFLOXACIN
     Indication: INFECTION PROPHYLAXIS
     Dosage: 500 MG, BID
     Route: 048
     Dates: start: 20191003, end: 20191005
  38. SELINEXOR [Suspect]
     Active Substance: SELINEXOR
     Dosage: 80 MG, WEEKLY
     Route: 048
     Dates: start: 20180723, end: 20180807
  39. SELINEXOR [Suspect]
     Active Substance: SELINEXOR
     Dosage: 80 MG, WEEKLY
     Route: 048
     Dates: start: 20181121, end: 20190805
  40. SELINEXOR [Suspect]
     Active Substance: SELINEXOR
     Dosage: 100 MG, WEEKLY
     Route: 048
     Dates: start: 20190806, end: 20191017
  41. BORTEZOMIB. [Suspect]
     Active Substance: BORTEZOMIB
     Dosage: 1.3 MG/M2, WEEKLY X 4 WEEKS, 1 WEEK OFF/CYCLE
     Route: 058
     Dates: start: 20180808, end: 20180828
  42. ACYCLOVIR. [Concomitant]
     Active Substance: ACYCLOVIR
     Indication: PROPHYLAXIS
     Dosage: 400 MG, BID
     Route: 048
     Dates: start: 20180508
  43. VILDAGLIPTIN [Concomitant]
     Active Substance: VILDAGLIPTIN
     Indication: PRODUCT USED FOR UNKNOWN INDICATION
     Dosage: 50 MG, QD
     Route: 048
     Dates: start: 20181105
  44. POTASSIUM CHLORIDE. [Concomitant]
     Active Substance: POTASSIUM CHLORIDE
     Indication: DIARRHOEA
     Dosage: 10 ML, TID
     Route: 048
     Dates: start: 20190930, end: 20191003
  45. HUMAN INSULINK [Concomitant]
     Active Substance: INSULIN HUMAN
     Dosage: 4 IU, TID
     Route: 058
     Dates: start: 20191002, end: 20191003
  46. BORTEZOMIB. [Suspect]
     Active Substance: BORTEZOMIB
     Indication: PLASMA CELL MYELOMA
     Dosage: 1.3 MG/M2, WEEKLY X 4 WEEKS, 1 WEEK OFF/CYCLE
     Route: 058
     Dates: start: 20180507, end: 20180722
  47. BORTEZOMIB. [Suspect]
     Active Substance: BORTEZOMIB
     Dosage: 1.3 MG/M2, WEEKLY X 4 WEEKS, 1 WEEK OFF/CYCLE
     Route: 058
     Dates: start: 20180925, end: 20181008
  48. ELTROMBOPAG OLAMINE [Concomitant]
     Active Substance: ELTROMBOPAG OLAMINE
     Indication: INFECTION PROPHYLAXIS
     Dosage: 50 MG, QD
     Route: 048
     Dates: start: 20190827, end: 20191022
  49. RACECADOTRIL [Concomitant]
     Active Substance: RACECADOTRIL
     Indication: DIARRHOEA
     Dosage: 100 MG, BID
     Route: 048
     Dates: start: 20190928, end: 20191003
  50. METFORMIN W/VILDAGLIPTIN [Concomitant]
     Active Substance: METFORMIN HYDROCHLORIDE\VILDAGLIPTIN
     Indication: DIABETES MELLITUS
     Dosage: 50/500 MG, BID
     Route: 048
     Dates: start: 20191003, end: 20191010

REACTIONS (1)
  - Meningitis tuberculous [Recovered/Resolved with Sequelae]

NARRATIVE: CASE EVENT DATE: 20191022
